FAERS Safety Report 21541473 (Version 1)
Quarter: 2022Q4

REPORT INFORMATION
  Report Type: Report from Study
  Country: IT (occurrence: IT)
  Receive Date: 20221102
  Receipt Date: 20221102
  Transmission Date: 20230113
  Serious: Yes (Other)
  Sender: FDA-Public Use
  Company Number: IT-SUN PHARMACEUTICAL INDUSTRIES LTD-2022RR-361639

PATIENT
  Age: 69 Year
  Sex: Female

DRUGS (24)
  1. PEMETREXED [Suspect]
     Active Substance: PEMETREXED
     Indication: Non-small cell lung cancer
     Dosage: UNK
     Route: 065
  2. CARBOPLATIN [Interacting]
     Active Substance: CARBOPLATIN
     Indication: Non-small cell lung cancer
     Dosage: UNK
     Route: 065
  3. AMIODARONE [Interacting]
     Active Substance: AMIODARONE
     Indication: Product used for unknown indication
     Dosage: UNK
     Route: 065
  4. AMIODARONE [Interacting]
     Active Substance: AMIODARONE
     Dosage: UNK
     Route: 065
  5. AMIODARONE [Interacting]
     Active Substance: AMIODARONE
     Dosage: UNK
     Route: 065
  6. AMIODARONE [Interacting]
     Active Substance: AMIODARONE
     Dosage: UNK
     Route: 065
  7. OMEPRAZOLE [Interacting]
     Active Substance: OMEPRAZOLE
     Indication: Product used for unknown indication
     Dosage: UNK
     Route: 065
  8. OMEPRAZOLE [Interacting]
     Active Substance: OMEPRAZOLE
     Dosage: UNK
     Route: 065
  9. ONDANSETRON [Interacting]
     Active Substance: ONDANSETRON
     Indication: Product used for unknown indication
     Dosage: UNK
     Route: 065
  10. ONDANSETRON [Interacting]
     Active Substance: ONDANSETRON
     Dosage: UNK
     Route: 065
  11. ONDANSETRON [Interacting]
     Active Substance: ONDANSETRON
     Dosage: UNK
     Route: 065
  12. ONDANSETRON [Interacting]
     Active Substance: ONDANSETRON
     Dosage: UNK
     Route: 065
  13. DEXAMETHASONE [Interacting]
     Active Substance: DEXAMETHASONE
     Indication: Product used for unknown indication
     Dosage: UNK
     Route: 065
  14. FUROSEMIDE [Interacting]
     Active Substance: FUROSEMIDE
     Indication: Product used for unknown indication
     Route: 065
  15. FUROSEMIDE [Interacting]
     Active Substance: FUROSEMIDE
     Dosage: UNK
     Route: 065
  16. FUROSEMIDE [Interacting]
     Active Substance: FUROSEMIDE
     Dosage: UNK
     Route: 065
  17. FUROSEMIDE [Interacting]
     Active Substance: FUROSEMIDE
     Dosage: UNK
     Route: 065
  18. TRAMADOL [Interacting]
     Active Substance: TRAMADOL
     Indication: Product used for unknown indication
     Dosage: UNK
     Route: 065
  19. TRAMADOL [Interacting]
     Active Substance: TRAMADOL
     Dosage: UNK
     Route: 065
  20. TRAMADOL [Interacting]
     Active Substance: TRAMADOL
     Dosage: UNK
     Route: 065
  21. TRAMADOL [Interacting]
     Active Substance: TRAMADOL
     Dosage: UNK
     Route: 065
  22. INSULIN NOS [Concomitant]
     Active Substance: INSULIN NOS
     Indication: Product used for unknown indication
     Dosage: UNK
     Route: 065
  23. PREGABALIN [Concomitant]
     Active Substance: PREGABALIN
     Indication: Product used for unknown indication
     Dosage: UNK
     Route: 065
  24. METHYLPREDNISOLONE [Concomitant]
     Active Substance: METHYLPREDNISOLONE
     Indication: Product used for unknown indication
     Dosage: UNK
     Route: 065

REACTIONS (2)
  - Drug interaction [Unknown]
  - Myalgia [Unknown]
